FAERS Safety Report 9543923 (Version 1)
Quarter: 2013Q2

REPORT INFORMATION
  Report Type: Spontaneous
  Country: US (occurrence: None)
  Receive Date: 20130524
  Receipt Date: 20130524
  Transmission Date: 20140414
  Serious: Yes (Other)
  Sender: FDA-Public Use
  Company Number: PHEH2012US024776

PATIENT
  Age: 32 Year
  Sex: Male

DRUGS (3)
  1. GILENYA (FINGOLIMOD) CAPSULE, 0.5MG [Suspect]
     Indication: MULTIPLE SCLEROSIS
     Route: 048
     Dates: start: 20121213
  2. MULTIVITAMIN/MULTIVITAMINS NOS (VITAMINS NOS) [Concomitant]
  3. RABEPRAZOLE [Suspect]

REACTIONS (2)
  - Discomfort [None]
  - Memory impairment [None]
